FAERS Safety Report 9573003 (Version 3)
Quarter: 2013Q4

REPORT INFORMATION
  Report Type: Spontaneous
  Country: JP (occurrence: JP)
  Receive Date: 20131001
  Receipt Date: 20131125
  Transmission Date: 20140711
  Serious: Yes (Hospitalization)
  Sender: FDA-Public Use
  Company Number: JP-ALLERGAN-1314832US

PATIENT
  Age: 50 Year
  Sex: Female

DRUGS (4)
  1. ALESION TABLET [Suspect]
     Indication: PRODUCT USED FOR UNKNOWN INDICATION
     Dosage: 280 MG, SINGLE
     Route: 048
  2. NORVASC [Suspect]
     Indication: PRODUCT USED FOR UNKNOWN INDICATION
     Dosage: 190 MG, SINGLE
     Route: 048
  3. MEILAX [Suspect]
     Indication: PRODUCT USED FOR UNKNOWN INDICATION
     Dosage: 280 MG, SINGLE
     Route: 048
  4. CLARITIN [Suspect]
     Indication: PRODUCT USED FOR UNKNOWN INDICATION
     Dosage: 160 MG, SINGLE
     Route: 048

REACTIONS (5)
  - Peripheral circulatory failure [Unknown]
  - Prerenal failure [Unknown]
  - Metabolic acidosis [Unknown]
  - Overdose [Unknown]
  - Blood pressure decreased [Unknown]
